FAERS Safety Report 6689810-8 (Version None)
Quarter: 2010Q2

REPORT INFORMATION
  Report Type: 
  Country: None (occurrence: None)
  Receive Date: 20100412
  Receipt Date: 20100210
  Transmission Date: 20101027
  Serious: No
  Sender: FDA-Public Use
  Company Number: 1000011762

PATIENT
  Age: 70 Year
  Sex: Female

DRUGS (1)
  1. BYSTOLIC [Suspect]
     Indication: HYPERTENSION
     Dosage: 5 MG (5 MG, 1IN 1 D), ORAL
     Route: 048

REACTIONS (1)
  - DRUG INEFFECTIVE [None]
